FAERS Safety Report 16574352 (Version 1)
Quarter: 2019Q3

REPORT INFORMATION
  Report Type: Spontaneous
  Country: US (occurrence: US)
  Receive Date: 20190715
  Receipt Date: 20190715
  Transmission Date: 20191004
  Serious: No
  Sender: FDA-Public Use
  Company Number: US-NOVOPROD-666290

PATIENT
  Sex: Female

DRUGS (1)
  1. OZEMPIC [Suspect]
     Active Substance: SEMAGLUTIDE
     Indication: TYPE 2 DIABETES MELLITUS
     Dosage: 0.25 MG
     Route: 058
     Dates: start: 20190517, end: 20190524

REACTIONS (10)
  - Chromaturia [Recovering/Resolving]
  - White blood cell count increased [Unknown]
  - Headache [Recovering/Resolving]
  - Eructation [Not Recovered/Not Resolved]
  - Nocturia [Recovering/Resolving]
  - Constipation [Not Recovered/Not Resolved]
  - Urine odour abnormal [Recovering/Resolving]
  - Decreased appetite [Recovering/Resolving]
  - Weight decreased [Recovering/Resolving]
  - Abdominal pain upper [Recovered/Resolved]

NARRATIVE: CASE EVENT DATE: 201905
